FAERS Safety Report 9311302 (Version 2)
Quarter: 2013Q3

REPORT INFORMATION
  Report Type: Spontaneous
  Country: US (occurrence: None)
  Receive Date: 20130327
  Receipt Date: 20130815
  Transmission Date: 20140515
  Serious: Yes (Other)
  Sender: FDA-Public Use
  Company Number: ADR-2012-00742

PATIENT
  Sex: Male

DRUGS (2)
  1. BACLOFEN INTRATHECAL [Suspect]
     Indication: CEREBRAL PALSY
  2. MORPHINE [Concomitant]

REACTIONS (8)
  - Device damage [None]
  - Musculoskeletal stiffness [None]
  - Muscle spasticity [None]
  - Drug effect decreased [None]
  - Mobility decreased [None]
  - Therapeutic response decreased [None]
  - Pain [None]
  - Paralysis [None]
